FAERS Safety Report 11231424 (Version 1)
Quarter: 2015Q3

REPORT INFORMATION
  Report Type: Spontaneous
  Country: CO (occurrence: CO)
  Receive Date: 20150701
  Receipt Date: 20150701
  Transmission Date: 20151125
  Serious: Yes (Other)
  Sender: FDA-Public Use
  Company Number: CO-JNJFOC-20150620252

PATIENT
  Age: 6 Year
  Sex: Male

DRUGS (3)
  1. TOPAMAC [Suspect]
     Active Substance: TOPIRAMATE
     Indication: CEREBRAL PALSY
     Route: 048
  2. TOPAMAC [Suspect]
     Active Substance: TOPIRAMATE
     Indication: SEIZURE
     Route: 048
  3. TOPAMAC [Suspect]
     Active Substance: TOPIRAMATE
     Indication: INFANTILE SPASMS
     Route: 048

REACTIONS (2)
  - Malaise [Unknown]
  - Seizure [Unknown]

NARRATIVE: CASE EVENT DATE: 201506
